FAERS Safety Report 19041479 (Version 1)
Quarter: 2021Q1

REPORT INFORMATION
  Report Type: Spontaneous
  Country: US (occurrence: US)
  Receive Date: 20210322
  Receipt Date: 20210322
  Transmission Date: 20210420
  Serious: No
  Sender: FDA-Public Use
  Company Number: US-MYLANLABS-2021M1014132

PATIENT
  Sex: Female
  Weight: 113 kg

DRUGS (1)
  1. EMSAM [Suspect]
     Active Substance: SELEGILINE
     Indication: DEPRESSION
     Dosage: 9 MILLIGRAM, QD
     Route: 062

REACTIONS (7)
  - Product quality issue [Unknown]
  - Application site swelling [Not Recovered/Not Resolved]
  - Product adhesion issue [Unknown]
  - Application site reaction [Unknown]
  - Skin exfoliation [Unknown]
  - Application site pruritus [Not Recovered/Not Resolved]
  - Wrong technique in product usage process [Unknown]
